FAERS Safety Report 7654507-4 (Version None)
Quarter: 2011Q3

REPORT INFORMATION
  Report Type: 
  Country: None (occurrence: None)
  Receive Date: 20110803
  Receipt Date: 20110725
  Transmission Date: 20111222
  Serious: Yes (Hospitalization)
  Sender: FDA-Public Use
  Company Number: US-ASTRAZENECA-2011SE35608

PATIENT
  Age: 81 Year
  Sex: Female

DRUGS (1)
  1. CRESTOR [Suspect]
     Route: 048

REACTIONS (15)
  - HALLUCINATION [None]
  - CHRONIC OBSTRUCTIVE PULMONARY DISEASE [None]
  - GASTROINTESTINAL INFECTION [None]
  - WEIGHT DECREASED [None]
  - URINARY TRACT INFECTION [None]
  - SYSTEMIC LUPUS ERYTHEMATOSUS [None]
  - OSTEOARTHRITIS [None]
  - MUSCULAR WEAKNESS [None]
  - NEOPLASM [None]
  - RETCHING [None]
  - ALOPECIA [None]
  - EMPHYSEMA [None]
  - SCLERITIS [None]
  - PNEUMONIA [None]
  - DIABETES MELLITUS [None]
